FAERS Safety Report 12408398 (Version 2)
Quarter: 2016Q3

REPORT INFORMATION
  Report Type: Spontaneous
  Country: US (occurrence: US)
  Receive Date: 20160526
  Receipt Date: 20160811
  Transmission Date: 20161109
  Serious: Yes (Death, Other)
  Sender: FDA-Public Use
  Company Number: US-BAYER-2016-097277

PATIENT
  Age: 62 Year
  Sex: Male

DRUGS (1)
  1. BETASERON [Suspect]
     Active Substance: INTERFERON BETA-1B
     Indication: MULTIPLE SCLEROSIS
     Dosage: UNK

REACTIONS (8)
  - Emphysema [None]
  - Arteriosclerosis [None]
  - Pneumonia [None]
  - Choking [None]
  - Multiple sclerosis [Fatal]
  - Paralysis [None]
  - Aspiration [Fatal]
  - Pain [None]

NARRATIVE: CASE EVENT DATE: 20150217
